FAERS Safety Report 14600772 (Version 4)
Quarter: 2018Q1

REPORT INFORMATION
  Report Type: Report from Study
  Country: US (occurrence: US)
  Receive Date: 20180305
  Receipt Date: 20180323
  Transmission Date: 20180509
  Serious: Yes (Hospitalization)
  Sender: FDA-Public Use
  Company Number: US-JNJFOC-20180303541

PATIENT
  Age: 73 Year
  Sex: Male

DRUGS (18)
  1. IMBRUVICA [Suspect]
     Active Substance: IBRUTINIB
     Indication: NON-HODGKIN^S LYMPHOMA
     Route: 048
     Dates: start: 20150630
  2. WARFARIN [Suspect]
     Active Substance: WARFARIN
     Indication: PRODUCT USED FOR UNKNOWN INDICATION
     Route: 065
  3. NEUMEGA [Concomitant]
     Active Substance: OPRELVEKIN
  4. IMBRUVICA [Suspect]
     Active Substance: IBRUTINIB
     Indication: MANTLE CELL LYMPHOMA
     Route: 048
     Dates: start: 20160322
  5. IMBRUVICA [Suspect]
     Active Substance: IBRUTINIB
     Indication: NON-HODGKIN^S LYMPHOMA
     Route: 048
     Dates: start: 20160322
  6. MULTIVITAMINS [Concomitant]
     Active Substance: VITAMINS
  7. ALBUTEROL. [Concomitant]
     Active Substance: ALBUTEROL
  8. IMBRUVICA [Suspect]
     Active Substance: IBRUTINIB
     Indication: MANTLE CELL LYMPHOMA
     Route: 048
     Dates: start: 20150630
  9. DILTIAZEM. [Concomitant]
     Active Substance: DILTIAZEM
  10. DIGOXIN. [Concomitant]
     Active Substance: DIGOXIN
  11. VITAMIN D [Concomitant]
     Active Substance: CHOLECALCIFEROL
  12. LIDOCAINE. [Concomitant]
     Active Substance: LIDOCAINE
  13. ASPIRIN. [Concomitant]
     Active Substance: ASPIRIN
  14. TYLENOL [Concomitant]
     Active Substance: ACETAMINOPHEN
  15. TOPROL XL [Concomitant]
     Active Substance: METOPROLOL SUCCINATE
  16. LANTUS [Concomitant]
     Active Substance: INSULIN GLARGINE
  17. IRON [Concomitant]
     Active Substance: IRON
  18. VALSARTAN. [Concomitant]
     Active Substance: VALSARTAN

REACTIONS (2)
  - Malaise [Unknown]
  - Gastrointestinal haemorrhage [Unknown]

NARRATIVE: CASE EVENT DATE: 20180221
